FAERS Safety Report 5126782-1 (Version None)
Quarter: 2006Q4

REPORT INFORMATION
  Report Type: 
  Country: None (occurrence: None)
  Receive Date: 20061010
  Receipt Date: 20060927
  Transmission Date: 20070319
  Serious: Yes (Other)
  Sender: FDA-Public Use
  Company Number: 2006117506

PATIENT
  Sex: Female

DRUGS (2)
  1. GEODON [Suspect]
  2. SOMA [Concomitant]

REACTIONS (3)
  - COMPLETED SUICIDE [None]
  - ELECTROCARDIOGRAM ABNORMAL [None]
  - OVERDOSE [None]
